FAERS Safety Report 20631942 (Version 1)
Quarter: 2022Q1

REPORT INFORMATION
  Report Type: Report from Study
  Country: US (occurrence: US)
  Receive Date: 20220324
  Receipt Date: 20220324
  Transmission Date: 20220423
  Serious: Yes (Other)
  Sender: FDA-Public Use
  Company Number: US-GILEAD-2022-0574307

PATIENT
  Age: 46 Year
  Sex: Male

DRUGS (15)
  1. AZTREONAM LYSINE [Suspect]
     Active Substance: AZTREONAM LYSINE
     Indication: Cystic fibrosis lung
     Dosage: 75 MG, TID, CYCLING 14 DAYS ON THEN 14 DAYS OFF AS DIRECTED
     Route: 055
     Dates: start: 202103
  2. FLOVENT [Concomitant]
     Active Substance: FLUTICASONE PROPIONATE
  3. MIRALAX [Concomitant]
     Active Substance: POLYETHYLENE GLYCOL 3350
  4. SENNOSIDES [Concomitant]
     Active Substance: SENNOSIDES
  5. SINGULAIR [Concomitant]
     Active Substance: MONTELUKAST SODIUM
  6. ZENPEP [Concomitant]
     Active Substance: PANCRELIPASE AMYLASE\PANCRELIPASE LIPASE\PANCRELIPASE PROTEASE
  7. ALBUTEROL SULFATE [Concomitant]
     Active Substance: ALBUTEROL SULFATE
  8. TYLENOL [Concomitant]
     Active Substance: ACETAMINOPHEN
  9. RHINOCORT [Concomitant]
     Active Substance: BUDESONIDE
  10. ADVIL [Concomitant]
     Active Substance: IBUPROFEN
  11. STIOLTO RESPIMAT [Concomitant]
     Active Substance: OLODATEROL HYDROCHLORIDE\TIOTROPIUM BROMIDE MONOHYDRATE
  12. CIPROFLOXACIN [Concomitant]
     Active Substance: CIPROFLOXACIN
  13. AZITHROMYCIN [Concomitant]
     Active Substance: AZITHROMYCIN
  14. PULMOZYME [Concomitant]
     Active Substance: DORNASE ALFA
  15. OXYGEN [Concomitant]
     Active Substance: OXYGEN

REACTIONS (2)
  - Cystic fibrosis [Unknown]
  - Off label use [Unknown]

NARRATIVE: CASE EVENT DATE: 20220301
